FAERS Safety Report 6122505-8 (Version None)
Quarter: 2009Q1

REPORT INFORMATION
  Report Type: 
  Country: None (occurrence: None)
  Receive Date: 20090318
  Receipt Date: 20081216
  Transmission Date: 20090719
  Serious: No
  Sender: FDA-Public Use
  Company Number: US-ASTRAZENECA-2008UW28114

PATIENT
  Age: 77 Year
  Sex: Male
  Weight: 95.7 kg

DRUGS (5)
  1. SYMBICORT [Suspect]
     Indication: ASTHMA
     Dosage: 80/4.5 UG
     Route: 055
  2. LOPRESSOR [Concomitant]
  3. FUROSEMIDE [Concomitant]
  4. METOPROLOL TARTRATE [Concomitant]
  5. SPIRIVA [Concomitant]

REACTIONS (2)
  - EYE PAIN [None]
  - MUCOUS MEMBRANE DISORDER [None]
